FAERS Safety Report 11497701 (Version 2)
Quarter: 2017Q1

REPORT INFORMATION
  Report Type: Spontaneous
  Country: US (occurrence: US)
  Receive Date: 20150911
  Receipt Date: 20170224
  Transmission Date: 20170428
  Serious: Yes (Other)
  Sender: FDA-Public Use
  Company Number: US-ELI_LILLY_AND_COMPANY-US201509001321

PATIENT
  Sex: Female
  Weight: 52 kg

DRUGS (1)
  1. CYMBALTA [Suspect]
     Active Substance: DULOXETINE HYDROCHLORIDE
     Indication: PRODUCT USED FOR UNKNOWN INDICATION
     Dosage: 60 MG, QD
     Route: 048

REACTIONS (13)
  - Dissociation [Unknown]
  - Insomnia [Unknown]
  - Withdrawal syndrome [Unknown]
  - Depression [Unknown]
  - Feeling abnormal [Unknown]
  - Disturbance in attention [Unknown]
  - Agitation [Unknown]
  - Anxiety [Unknown]
  - Vomiting [Unknown]
  - Crying [Unknown]
  - Nausea [Unknown]
  - Dysphoria [Unknown]
  - Paraesthesia [Unknown]
